FAERS Safety Report 16654018 (Version 2)
Quarter: 2019Q4

REPORT INFORMATION
  Report Type: Spontaneous
  Country: US (occurrence: US)
  Receive Date: 20190731
  Receipt Date: 20191003
  Transmission Date: 20200122
  Serious: Yes (Other)
  Sender: FDA-Public Use
  Company Number: US-DSJP-DSU-2019-128824

PATIENT

DRUGS (1)
  1. BENICAR [Suspect]
     Active Substance: OLMESARTAN MEDOXOMIL
     Indication: HYPERTENSION
     Dosage: 20 MG, QD
     Route: 048
     Dates: start: 2005

REACTIONS (5)
  - Off label use [Not Recovered/Not Resolved]
  - Stent placement [Unknown]
  - Blood cholesterol increased [Unknown]
  - Intestinal resection [Unknown]
  - Neck surgery [Unknown]

NARRATIVE: CASE EVENT DATE: 2005
